FAERS Safety Report 4275463-5 (Version None)
Quarter: 2004Q1

REPORT INFORMATION
  Report Type: 
  Country: None (occurrence: None)
  Receive Date: 20040116
  Receipt Date: 20031224
  Transmission Date: 20041129
  Serious: Yes (Hospitalization)
  Sender: FDA-Public Use
  Company Number: 27412

PATIENT
  Sex: Female

DRUGS (3)
  1. ECONOPRED PLUS [Suspect]
     Indication: PROPHYLAXIS
     Dosage: 1 GTT Q4HR OPHT
     Route: 047
     Dates: start: 20031203
  2. ATROPINE [Concomitant]
  3. GATIFLOXACIN [Concomitant]

REACTIONS (3)
  - EYE INFECTION [None]
  - POSTOPERATIVE INFECTION [None]
  - VISION BLURRED [None]
